FAERS Safety Report 7575710-8 (Version None)
Quarter: 2011Q2

REPORT INFORMATION
  Report Type: 
  Country: None (occurrence: None)
  Receive Date: 20110628
  Receipt Date: 20110616
  Transmission Date: 20111010
  Serious: No
  Sender: FDA-Public Use
  Company Number: US-BIOGENIDEC-2010BI039327

PATIENT
  Sex: Female

DRUGS (3)
  1. TYSABRI [Suspect]
     Indication: MULTIPLE SCLEROSIS
     Route: 042
     Dates: start: 20100723
  2. COPAXONE [Concomitant]
     Indication: MULTIPLE SCLEROSIS
     Dates: start: 20090101
  3. REBIF [Concomitant]
     Indication: MULTIPLE SCLEROSIS

REACTIONS (6)
  - FATIGUE [None]
  - MIGRAINE [None]
  - MEMORY IMPAIRMENT [None]
  - GAIT DISTURBANCE [None]
  - DEPRESSION [None]
  - TEMPERATURE INTOLERANCE [None]
